FAERS Safety Report 5225378-0 (Version None)
Quarter: 2007Q1

REPORT INFORMATION
  Report Type: 
  Country: None (occurrence: None)
  Receive Date: 20070131
  Receipt Date: 20070129
  Transmission Date: 20070707
  Serious: Yes (Other)
  Sender: FDA-Public Use
  Company Number: TR-BOEHRINGER INGELHEIM PHARMACEUTICALS, INC.-2007-DE-00515GD

PATIENT
  Age: 38 Year

DRUGS (4)
  1. MELOXICAM [Suspect]
     Indication: ALLERGY TEST
     Route: 048
  2. ACETYLSALICYLIC ACID [Suspect]
     Route: 048
  3. ACETAMINOPHEN [Suspect]
     Route: 048
  4. NSAID'S [Suspect]
     Route: 048

REACTIONS (3)
  - ANAPHYLACTIC REACTION [None]
  - DRUG INTOLERANCE [None]
  - URTICARIA [None]
